FAERS Safety Report 23949377 (Version 1)
Quarter: 2024Q2

REPORT INFORMATION
  Report Type: Spontaneous
  Country: GB (occurrence: GB)
  Receive Date: 20240607
  Receipt Date: 20240607
  Transmission Date: 20240716
  Serious: Yes (Death, Hospitalization, Other)
  Sender: FDA-Public Use
  Company Number: GB-SUN PHARMACEUTICAL INDUSTRIES LTD-2024R1-450085

PATIENT
  Age: 10 Year
  Sex: Female
  Weight: 1.17 kg

DRUGS (6)
  1. CEFUROXIME [Suspect]
     Active Substance: CEFUROXIME
     Indication: Viral infection
     Dosage: UNK
     Route: 065
  2. CEFUROXIME [Suspect]
     Active Substance: CEFUROXIME
     Indication: Lower respiratory tract infection
  3. ACETAMINOPHEN [Suspect]
     Active Substance: ACETAMINOPHEN
     Indication: Viral infection
     Dosage: UNK
     Route: 065
  4. ACETAMINOPHEN [Suspect]
     Active Substance: ACETAMINOPHEN
     Indication: Lower respiratory tract infection
  5. ALBUTEROL [Suspect]
     Active Substance: ALBUTEROL
     Indication: Viral infection
     Dosage: UNK
     Route: 065
  6. ALBUTEROL [Suspect]
     Active Substance: ALBUTEROL
     Indication: Lower respiratory tract infection

REACTIONS (2)
  - Cardiac arrest [Fatal]
  - Pyroglutamic acidosis [Fatal]
